FAERS Safety Report 5613156-X (Version None)
Quarter: 2008Q1

REPORT INFORMATION
  Report Type: 
  Country: None (occurrence: None)
  Receive Date: 20080204
  Receipt Date: 20080125
  Transmission Date: 20080703
  Serious: Yes (Other)
  Sender: FDA-Public Use
  Company Number: US-ABBOTT-08P-163-0435744-00

PATIENT
  Sex: Female
  Weight: 64.468 kg

DRUGS (2)
  1. HUMIRA [Suspect]
     Indication: RHEUMATOID ARTHRITIS
     Dosage: SYRINGE
     Route: 058
     Dates: start: 20040101, end: 20070801
  2. HUMIRA [Suspect]
     Dosage: PEN
     Route: 058
     Dates: start: 20070801

REACTIONS (1)
  - THORACIC VERTEBRAL FRACTURE [None]
